FAERS Safety Report 9198724 (Version 2)
Quarter: 2013Q2

REPORT INFORMATION
  Report Type: Spontaneous
  Country: US (occurrence: US)
  Receive Date: 20130329
  Receipt Date: 20130417
  Transmission Date: 20140414
  Serious: No
  Sender: FDA-Public Use
  Company Number: US-TEVA-395268USA

PATIENT
  Sex: Female

DRUGS (1)
  1. QVAR [Suspect]
     Indication: ASTHMA

REACTIONS (3)
  - Asthma [Recovered/Resolved]
  - Drug ineffective [Recovered/Resolved]
  - Chest discomfort [Recovered/Resolved]
